FAERS Safety Report 25150025 (Version 1)
Quarter: 2025Q2

REPORT INFORMATION
  Report Type: Spontaneous
  Country: CN (occurrence: CN)
  Receive Date: 20250402
  Receipt Date: 20250402
  Transmission Date: 20250717
  Serious: Yes (Other)
  Sender: PFIZER
  Company Number: CN-PFIZER INC-PV202500038281

PATIENT
  Age: 10 Year
  Sex: Male

DRUGS (3)
  1. CYTARABINE [Suspect]
     Active Substance: CYTARABINE
     Indication: Lymphadenitis
     Dosage: 0.035 G, 1X/DAY
     Route: 037
     Dates: start: 20250311, end: 20250311
  2. CYCLOPHOSPHAMIDE [Suspect]
     Active Substance: CYCLOPHOSPHAMIDE
     Indication: Lymphadenitis
     Dosage: 0.267 G, 1X/DAY
     Route: 041
     Dates: start: 20250311, end: 20250311
  3. METHOTREXATE [Suspect]
     Active Substance: METHOTREXATE
     Indication: Lymphadenitis
     Dosage: 12.5 MG, 1X/DAY
     Route: 037
     Dates: start: 20250311, end: 20250311

REACTIONS (2)
  - Drug-induced liver injury [Recovering/Resolving]
  - Hepatic function abnormal [Recovering/Resolving]

NARRATIVE: CASE EVENT DATE: 20250317
